FAERS Safety Report 7394890-0 (Version None)
Quarter: 2011Q2

REPORT INFORMATION
  Report Type: 
  Country: None (occurrence: None)
  Receive Date: 20110405
  Receipt Date: 20110329
  Transmission Date: 20111010
  Serious: Yes (Hospitalization)
  Sender: FDA-Public Use
  Company Number: B0697578A

PATIENT
  Sex: Male

DRUGS (15)
  1. PARENTERAL NUTRITION SOLUTION [Suspect]
     Dosage: 1L PER DAY
     Route: 065
     Dates: end: 20101224
  2. XANAX [Suspect]
     Dosage: .75MG PER DAY
     Route: 048
     Dates: start: 20101210
  3. KEPPRA [Suspect]
     Indication: CLONUS
     Dosage: 500MG TWICE PER DAY
     Route: 048
     Dates: start: 20101210
  4. CERTICAN [Concomitant]
     Dosage: .25MG TWICE PER DAY
     Route: 065
     Dates: start: 20070601
  5. TARCEVA [Suspect]
     Indication: ADENOCARCINOMA
     Dosage: 150MG PER DAY
     Route: 048
     Dates: start: 20101218
  6. AUGMENTIN [Suspect]
     Dosage: 1G THREE TIMES PER DAY
     Route: 048
     Dates: start: 20101216, end: 20101223
  7. INIPOMP [Suspect]
     Dosage: 40MG PER DAY
     Route: 048
     Dates: start: 20101213, end: 20101223
  8. RANITIDINE [Concomitant]
  9. PERFALGAN [Concomitant]
     Indication: PAIN
     Dates: start: 20101210, end: 20101227
  10. NEORAL [Concomitant]
     Dosage: 20MG PER DAY
     Dates: start: 20070601
  11. LOVENOX [Concomitant]
  12. SOLU-MEDROL [Concomitant]
     Indication: METASTASIS
     Dates: start: 20101020
  13. LEXOMIL [Concomitant]
     Dates: end: 20101212
  14. TRANEXAMIC ACID [Suspect]
     Dosage: 500MG FOUR TIMES PER DAY
     Route: 048
     Dates: start: 20101220
  15. DURAGESIC-100 [Concomitant]
     Dates: start: 20101109

REACTIONS (4)
  - HAEMOPTYSIS [None]
  - HISTIOCYTOSIS HAEMATOPHAGIC [None]
  - THROMBOCYTOPENIA [None]
  - MACROPHAGES INCREASED [None]
